FAERS Safety Report 16369251 (Version 1)
Quarter: 2019Q2

REPORT INFORMATION
  Report Type: Spontaneous
  Country: US (occurrence: US)
  Receive Date: 20190529
  Receipt Date: 20190529
  Transmission Date: 20190711
  Serious: Yes (Other)
  Sender: FDA-Public Use
  Company Number: US-SHIRE-US201916675

PATIENT
  Sex: Female

DRUGS (1)
  1. NATPARA (PARATHYROID HORMONE) [Suspect]
     Active Substance: PARATHYROID HORMONE
     Indication: PRODUCT USED FOR UNKNOWN INDICATION
     Route: 065

REACTIONS (7)
  - Blindness [Unknown]
  - Malaise [Unknown]
  - Product administration interrupted [Unknown]
  - Seizure [Unknown]
  - Loss of consciousness [Unknown]
  - Insurance issue [Unknown]
  - Dyspnoea [Not Recovered/Not Resolved]
